FAERS Safety Report 18986019 (Version 1)
Quarter: 2021Q1

REPORT INFORMATION
  Report Type: Other
  Country: ES (occurrence: ES)
  Receive Date: 20210309
  Receipt Date: 20210309
  Transmission Date: 20210420
  Serious: Yes (Other)
  Sender: FDA-Public Use
  Company Number: ES-ROCHE-2779103

PATIENT

DRUGS (7)
  1. METHOTREXATE. [Suspect]
     Active Substance: METHOTREXATE
     Indication: IMMUNOSUPPRESSANT DRUG THERAPY
     Route: 065
  2. HYDROXYCHLOROQUINE [Suspect]
     Active Substance: HYDROXYCHLOROQUINE
     Indication: IMMUNOSUPPRESSANT DRUG THERAPY
     Route: 065
  3. LEFLUNOMIDE. [Suspect]
     Active Substance: LEFLUNOMIDE
     Indication: IMMUNOSUPPRESSANT DRUG THERAPY
     Route: 065
  4. AZATHIOPRINE. [Suspect]
     Active Substance: AZATHIOPRINE
     Indication: IMMUNOSUPPRESSANT DRUG THERAPY
     Route: 065
  5. TOCILIZUMAB. [Suspect]
     Active Substance: TOCILIZUMAB
     Indication: GIANT CELL ARTERITIS
     Route: 042
  6. TOCILIZUMAB. [Suspect]
     Active Substance: TOCILIZUMAB
     Indication: GIANT CELL ARTERITIS
     Route: 058
  7. CYCLOPHOSPHAMIDE. [Suspect]
     Active Substance: CYCLOPHOSPHAMIDE
     Indication: IMMUNOSUPPRESSANT DRUG THERAPY
     Route: 065

REACTIONS (28)
  - Bursitis infective [Unknown]
  - Bicytopenia [Unknown]
  - Pneumonia [Unknown]
  - Hepatotoxicity [Unknown]
  - Anaemia [Unknown]
  - Endocarditis [Unknown]
  - Sepsis [Unknown]
  - Myelodysplastic syndrome [Unknown]
  - Urinary tract infection [Unknown]
  - Myopathy [Unknown]
  - Atrioventricular block [Unknown]
  - Off label use [Unknown]
  - Herpes zoster [Unknown]
  - Cytomegalovirus infection [Unknown]
  - Thrombocytopenia [Unknown]
  - Infected skin ulcer [Unknown]
  - Urosepsis [Unknown]
  - Leukopenia [Unknown]
  - Anal abscess [Unknown]
  - Diverticulitis [Unknown]
  - Meningitis bacterial [Unknown]
  - Hypertensive crisis [Unknown]
  - Cellulitis [Unknown]
  - Adenocarcinoma of colon [Unknown]
  - Neutropenia [Unknown]
  - Cerebrovascular accident [Unknown]
  - Dementia Alzheimer^s type [Unknown]
  - Lung neoplasm malignant [Unknown]
